FAERS Safety Report 6081800-1 (Version None)
Quarter: 2009Q1

REPORT INFORMATION
  Report Type: 
  Country: None (occurrence: None)
  Receive Date: 20090126
  Receipt Date: 20080612
  Transmission Date: 20090719
  Serious: Yes (Other)
  Sender: FDA-Public Use
  Company Number: WAES 0806USA02855

PATIENT
  Age: 62 Year
  Sex: Male

DRUGS (6)
  1. INVANZ [Suspect]
     Indication: PERITONITIS
     Dosage: 1 GM/DAILY/IV
     Route: 042
     Dates: start: 20080602, end: 20080609
  2. ALTACE [Concomitant]
  3. DILAUDID [Concomitant]
  4. LOVENOX [Concomitant]
  5. MEPERGAN [Concomitant]
  6. PROTONIX [Concomitant]

REACTIONS (1)
  - CONVULSION [None]
